FAERS Safety Report 9542042 (Version 2)
Quarter: 2013Q3

REPORT INFORMATION
  Report Type: Report from Study
  Country: DE (occurrence: DE)
  Receive Date: 20130923
  Receipt Date: 20130930
  Transmission Date: 20140515
  Serious: Yes (Hospitalization)
  Sender: FDA-Public Use
  Company Number: DE-AMGEN-DEUCT2013066367

PATIENT
  Age: 43 Year
  Sex: Female
  Weight: 67 kg

DRUGS (4)
  1. ETANERCEPT [Suspect]
     Indication: PRODUCT USED FOR UNKNOWN INDICATION
     Dosage: 25 MG, 2 TIMES/WK
     Route: 065
     Dates: start: 20080710
  2. VOLTAREN                           /00372302/ [Concomitant]
     Dosage: UNK
  3. PANTOZOL                           /01263204/ [Concomitant]
     Dosage: 40 MG, UNK
  4. FRAXIPARIN                         /00889603/ [Concomitant]
     Dosage: 0.3 ML, UNK
     Route: 058

REACTIONS (2)
  - Meniscal degeneration [Recovered/Resolved]
  - Synovial cyst [Recovered/Resolved]
